FAERS Safety Report 9174708 (Version 1)
Quarter: 2013Q1

REPORT INFORMATION
  Report Type: Report from Study
  Country: US (occurrence: US)
  Receive Date: 20130320
  Receipt Date: 20130320
  Transmission Date: 20140127
  Serious: No
  Sender: FDA-Public Use
  Company Number: US-VERTEX PHARMACEUTICALS INC.-2013-003749

PATIENT
  Sex: Male
  Weight: 86 kg

DRUGS (8)
  1. VX-950 (TELAPREVIR) [Suspect]
     Indication: HEPATITIS C
     Dosage: 750 MG, TID
     Route: 048
  2. PEGASYS [Suspect]
     Indication: HEPATITIS C
     Dosage: 180 ?G, UNK
  3. RIBAVIRIN [Suspect]
     Indication: HEPATITIS C
     Dosage: 600 MG, UNK
  4. AMBIEN [Concomitant]
     Dosage: 10 MG, UNK
  5. COD LIVER [Concomitant]
  6. TEMAZEPAM [Concomitant]
     Dosage: 15 MG, UNK
  7. FISH OIL [Concomitant]
  8. MULTIVITAMIN [Concomitant]

REACTIONS (5)
  - Hepatic enzyme increased [Recovered/Resolved]
  - Dyspnoea exertional [Unknown]
  - Insomnia [Unknown]
  - Irritability [Unknown]
  - Anaemia [Unknown]
